FAERS Safety Report 8056558-7 (Version None)
Quarter: 2012Q1

REPORT INFORMATION
  Report Type: 
  Country: None (occurrence: None)
  Receive Date: 20120119
  Receipt Date: 20110121
  Transmission Date: 20120608
  Serious: No
  Sender: FDA-Public Use
  Company Number: US-SANOFI-AVENTIS-2011SA005818

PATIENT
  Age: 79 Year
  Sex: Female
  Weight: 108.8 kg

DRUGS (11)
  1. LISINOPRIL [Concomitant]
     Route: 065
  2. ACETAMINOPHEN [Concomitant]
     Indication: ARTHRITIS
  3. WARFARIN SODIUM [Concomitant]
     Route: 065
  4. LASIX [Suspect]
     Route: 048
     Dates: start: 20101201, end: 20110101
  5. SIMVASTATIN [Concomitant]
     Route: 065
  6. POTASSIUM CHLORIDE [Concomitant]
     Route: 065
  7. ATENOLOL [Concomitant]
     Route: 065
  8. TIKOSYN [Suspect]
     Indication: ATRIAL FIBRILLATION
     Route: 048
  9. LEVOTHYROXINE SODIUM [Concomitant]
     Route: 065
  10. FENOFIBRATE [Concomitant]
     Route: 065
  11. MULTI-VITAMINS [Concomitant]

REACTIONS (4)
  - GAIT DISTURBANCE [None]
  - HEART RATE INCREASED [None]
  - OEDEMA [None]
  - CHEST PAIN [None]
